FAERS Safety Report 8125680-9 (Version None)
Quarter: 2012Q1

REPORT INFORMATION
  Report Type: 
  Country: None (occurrence: None)
  Receive Date: 20120209
  Receipt Date: 20120206
  Transmission Date: 20120608
  Serious: Yes (Hospitalization)
  Sender: FDA-Public Use
  Company Number: US-PFIZER INC-2012032408

PATIENT
  Sex: Male
  Weight: 104.31 kg

DRUGS (14)
  1. LIPITOR [Suspect]
     Dosage: UNK
     Route: 048
  2. BUSPIRONE [Concomitant]
     Dosage: 50 MG, 3X/DAY
  3. LYRICA [Suspect]
     Indication: PAIN
     Dosage: 25 MG, 2X/DAY
     Route: 048
  4. CLONAZEPAM [Concomitant]
     Indication: PANIC DISORDER
     Dosage: 1 MG
  5. HYDROCHLOROTHIAZIDE [Concomitant]
     Dosage: 25 MG, 1X/DAY
  6. LIPITOR [Suspect]
     Indication: BLOOD CHOLESTEROL INCREASED
     Dosage: 10 MG, 1X/DAY
     Route: 048
  7. LEVOTHYROXINE [Concomitant]
     Indication: THYROID DISORDER
     Dosage: 100 UG, 1X/DAY
  8. RANEXA [Concomitant]
     Indication: CARDIAC DISORDER
     Dosage: 500 MG, 2X/DAY
  9. OMEPRAZOLE [Concomitant]
     Indication: GASTROOESOPHAGEAL REFLUX DISEASE
     Dosage: 25 MG, 2X/DAY
  10. LYRICA [Suspect]
     Indication: NEUROPATHY PERIPHERAL
     Dosage: 75 MG, 3X/DAY
     Route: 048
  11. LYRICA [Suspect]
     Dosage: UNK
     Route: 048
  12. BUPROPION [Concomitant]
     Indication: DEPRESSION
     Dosage: 300 MG, 1X/DAY
  13. TRAZODONE [Concomitant]
     Indication: INSOMNIA
     Dosage: 100 MG
  14. AMLODIPINE [Concomitant]
     Indication: HYPERTENSION
     Dosage: 5 MG, 1X/DAY

REACTIONS (3)
  - BACK PAIN [None]
  - BLOOD GLUCOSE INCREASED [None]
  - PAIN IN EXTREMITY [None]
